FAERS Safety Report 15643199 (Version 1)
Quarter: 2018Q4

REPORT INFORMATION
  Report Type: Spontaneous
  Country: US (occurrence: US)
  Receive Date: 20181120
  Receipt Date: 20181120
  Transmission Date: 20190205
  Serious: Yes (Hospitalization)
  Sender: FDA-Public Use
  Company Number: None

PATIENT
  Age: 15 Year
  Sex: Female

DRUGS (9)
  1. BACTRIM [Concomitant]
     Active Substance: SULFAMETHOXAZOLE\TRIMETHOPRIM
  2. SODIUM CHLORIDE. [Concomitant]
     Active Substance: SODIUM CHLORIDE
  3. OMEPRAZOLE. [Concomitant]
     Active Substance: OMEPRAZOLE
  4. AQUADEKS [Concomitant]
     Active Substance: MINERALS\VITAMINS
  5. ZENPEP [Suspect]
     Active Substance: PANCRELIPASE AMYLASE\PANCRELIPASE LIPASE\PANCRELIPASE PROTEASE
     Indication: CYSTIC FIBROSIS
     Dosage: ?          OTHER FREQUENCY:AS DIRECTED;?
     Route: 048
     Dates: start: 20161129
  6. PULMOZYME [Concomitant]
     Active Substance: DORNASE ALFA
  7. KALYDECO [Concomitant]
     Active Substance: IVACAFTOR
  8. FLUTICASONE. [Concomitant]
     Active Substance: FLUTICASONE
  9. CIPROFLOXACIN. [Concomitant]
     Active Substance: CIPROFLOXACIN

REACTIONS (1)
  - Pulmonary function test decreased [None]

NARRATIVE: CASE EVENT DATE: 20181108
